FAERS Safety Report 16971580 (Version 1)
Quarter: 2019Q4

REPORT INFORMATION
  Report Type: Spontaneous
  Country: US (occurrence: US)
  Receive Date: 20190912
  Receipt Date: 20190912
  Transmission Date: 20200122
  Serious: Yes (Other)
  Sender: FDA-Public Use
  Company Number: None

PATIENT
  Sex: Male

DRUGS (12)
  1. NEORAL [Suspect]
     Active Substance: CYCLOSPORINE
     Indication: LUNG TRANSPLANT
     Route: 048
     Dates: start: 201610, end: 201909
  2. ACITRETIN. [Concomitant]
     Active Substance: ACITRETIN
  3. FLUOROURACIL. [Concomitant]
     Active Substance: FLUOROURACIL
  4. PREDNISONE. [Concomitant]
     Active Substance: PREDNISONE
  5. MYCOPHENOLATE 500 MG [Suspect]
     Active Substance: MYCOPHENOLATE MOFETIL
     Indication: LUNG TRANSPLANT
     Route: 048
     Dates: start: 20140610
  6. AZYTHROMYCIN [Concomitant]
     Active Substance: AZITHROMYCIN ANHYDROUS
  7. REVATIO [Concomitant]
     Active Substance: SILDENAFIL CITRATE
  8. SMZ SORIATIANE [Concomitant]
  9. AZATHIOPRINE. [Concomitant]
     Active Substance: AZATHIOPRINE
  10. CALCIUM [Concomitant]
     Active Substance: CALCIUM
  11. ENALAPRIL [Concomitant]
     Active Substance: ENALAPRIL
  12. NIFEDIPINE. [Concomitant]
     Active Substance: NIFEDIPINE

REACTIONS (1)
  - Red blood cell count decreased [None]
